FAERS Safety Report 4264981-1 (Version None)
Quarter: 2004Q1

REPORT INFORMATION
  Report Type: 
  Country: None (occurrence: None)
  Receive Date: 20040106
  Receipt Date: 20021227
  Transmission Date: 20041129
  Serious: Yes (Death, Hospitalization)
  Sender: FDA-Public Use
  Company Number: WAES 0212CHE00032

PATIENT
  Age: 69 Year
  Sex: Male

DRUGS (12)
  1. ACENOCOUMAROL [Concomitant]
     Indication: ATRIAL FIBRILLATION
     Route: 048
     Dates: start: 20020801, end: 20021213
  2. ACETAMINOPHEN [Concomitant]
     Route: 048
     Dates: start: 20020801, end: 20021213
  3. AMIODARONE HYDROCHLORIDE [Concomitant]
     Indication: ATRIAL FIBRILLATION
     Route: 048
     Dates: start: 20020801, end: 20021213
  4. ASCORBIC ACID AND VITAMIN B (UNSPECIFIED) [Concomitant]
     Route: 048
     Dates: end: 20021213
  5. FUROSEMIDE [Concomitant]
     Route: 048
     Dates: end: 20021213
  6. LACTULOSE [Concomitant]
     Route: 048
     Dates: end: 20021213
  7. LORAZEPAM [Concomitant]
     Route: 048
     Dates: end: 20021213
  8. POTASSIUM CHLORIDE [Concomitant]
     Route: 048
     Dates: end: 20021213
  9. VIOXX [Suspect]
     Indication: LOCALISED OSTEOARTHRITIS
     Route: 048
     Dates: start: 20020801, end: 20021213
  10. SPIRONOLACTONE [Concomitant]
     Route: 048
     Dates: end: 20021213
  11. THIAMINE HYDROCHLORIDE [Concomitant]
     Route: 048
     Dates: end: 20021213
  12. TRAMADOL HYDROCHLORIDE [Concomitant]
     Route: 048
     Dates: end: 20021213

REACTIONS (17)
  - ANURIA [None]
  - CARDIOMYOPATHY [None]
  - COMA HEPATIC [None]
  - DRUG TOXICITY [None]
  - DYSPNOEA [None]
  - HEPATIC CIRRHOSIS [None]
  - HEPATIC NECROSIS [None]
  - HEPATIC NEOPLASM [None]
  - HEPATIC STEATOSIS [None]
  - HEPATITIS B [None]
  - HEPATITIS FULMINANT [None]
  - HYPOGLYCAEMIA [None]
  - PCO2 DECREASED [None]
  - PSYCHOMOTOR RETARDATION [None]
  - RENAL IMPAIRMENT [None]
  - SOMNOLENCE [None]
  - WEIGHT INCREASED [None]
